FAERS Safety Report 7818283-4 (Version None)
Quarter: 2011Q4

REPORT INFORMATION
  Report Type: 
  Country: None (occurrence: None)
  Receive Date: 20111017
  Receipt Date: 20111010
  Transmission Date: 20120403
  Serious: Yes (Other)
  Sender: FDA-Public Use
  Company Number: BR-ABBOTT-11P-020-0863018-00

PATIENT
  Sex: Female
  Weight: 57 kg

DRUGS (6)
  1. SCOPOLAMINE BUTYLBROMIDE (BUSCOPAN) [Concomitant]
     Indication: PAIN
     Route: 048
  2. HUMIRA [Suspect]
     Indication: CROHN'S DISEASE
     Route: 058
     Dates: start: 20110415
  3. UNKNOWN ANTIBIOTICS [Suspect]
     Indication: PRODUCT USED FOR UNKNOWN INDICATION
  4. DIMENHYDRINATE [Concomitant]
     Indication: PAIN
     Route: 048
  5. BROMAZEPAM [Concomitant]
     Indication: SLEEP DISORDER THERAPY
     Route: 048
  6. DORILESS [Concomitant]
     Indication: MUSCLE RELAXANT THERAPY
     Dosage: SODIUM DIPYRONE + PROMETHAZINE HYDROCHLORIDE + ADIPHENINE HYDROCHLORIDE
     Route: 048
     Dates: start: 20110925

REACTIONS (10)
  - SYNCOPE [None]
  - WEIGHT DECREASED [None]
  - LOCALISED INFECTION [None]
  - HYPERSENSITIVITY [None]
  - FEELING ABNORMAL [None]
  - DIARRHOEA [None]
  - HERPES ZOSTER [None]
  - VOMITING [None]
  - DECREASED APPETITE [None]
  - INTESTINAL MASS [None]
